FAERS Safety Report 5936195-8 (Version None)
Quarter: 2008Q4

REPORT INFORMATION
  Report Type: 
  Country: None (occurrence: None)
  Receive Date: 20081030
  Receipt Date: 20081020
  Transmission Date: 20090506
  Serious: Yes (Other)
  Sender: FDA-Public Use
  Company Number: US-PFIZER INC-2008088312

PATIENT
  Sex: Female
  Weight: 86.2 kg

DRUGS (3)
  1. LYRICA [Suspect]
     Indication: NERVE INJURY
     Route: 048
     Dates: start: 20080801
  2. LYRICA [Suspect]
     Indication: NEURALGIA
  3. ANALGESICS [Concomitant]

REACTIONS (4)
  - ABDOMINAL DISTENSION [None]
  - DISSOCIATION [None]
  - DIZZINESS [None]
  - VOMITING [None]
